FAERS Safety Report 24926837 (Version 2)
Quarter: 2025Q1

REPORT INFORMATION
  Report Type: Report from Study
  Country: US (occurrence: US)
  Receive Date: 20250205
  Receipt Date: 20250228
  Transmission Date: 20250409
  Serious: Yes (Hospitalization)
  Sender: GILEAD
  Company Number: US-GILEAD-2025-0702650

PATIENT
  Age: 3 Year
  Sex: Male

DRUGS (14)
  1. AZTREONAM LYSINE [Suspect]
     Active Substance: AZTREONAM LYSINE
     Indication: Respiratory disorder
     Dosage: 75 MG, TID (EVERY OTHER MONTH,ODD MONTH )
     Route: 055
     Dates: start: 20240604
  2. GABAPENTIN [Concomitant]
     Active Substance: GABAPENTIN
  3. BACLOFEN [Concomitant]
     Active Substance: BACLOFEN
  4. AZITHROMYCIN [Concomitant]
     Active Substance: AZITHROMYCIN
  5. FYCOMPA [Concomitant]
     Active Substance: PERAMPANEL
  6. ALBUTEROL SULFATE [Concomitant]
     Active Substance: ALBUTEROL SULFATE
  7. EPIDIOLEX [Concomitant]
     Active Substance: CANNABIDIOL
  8. MIDAZOLAM [Concomitant]
     Active Substance: MIDAZOLAM
  9. ONFI [Concomitant]
     Active Substance: CLOBAZAM
  10. CLONIDINE [Concomitant]
     Active Substance: CLONIDINE
  11. KEPPRA [Concomitant]
     Active Substance: LEVETIRACETAM
  12. FLONASE [Concomitant]
     Active Substance: FLUTICASONE PROPIONATE
  13. OMEPRAZOLE [Concomitant]
     Active Substance: OMEPRAZOLE
  14. KITABIS PAK [Concomitant]
     Active Substance: TOBRAMYCIN

REACTIONS (4)
  - Respiratory disorder [Unknown]
  - Product use issue [Not Recovered/Not Resolved]
  - Product use in unapproved indication [Not Recovered/Not Resolved]
  - Product dose omission issue [Unknown]
